FAERS Safety Report 5516299-4 (Version None)
Quarter: 2007Q4

REPORT INFORMATION
  Report Type: 
  Country: None (occurrence: None)
  Receive Date: 20071114
  Receipt Date: 20070124
  Transmission Date: 20080405
  Serious: No
  Sender: FDA-Public Use
  Company Number: A0636661A

PATIENT
  Age: 50 Year
  Sex: Male

DRUGS (1)
  1. COMMIT [Suspect]

REACTIONS (5)
  - COUGH [None]
  - NAUSEA [None]
  - PARAESTHESIA ORAL [None]
  - STOMACH DISCOMFORT [None]
  - THROAT IRRITATION [None]
